FAERS Safety Report 9069417 (Version 2)
Quarter: 2013Q2

REPORT INFORMATION
  Report Type: Spontaneous
  Country: US (occurrence: US)
  Receive Date: 20130215
  Receipt Date: 20130528
  Transmission Date: 20140414
  Serious: Yes (Hospitalization)
  Sender: FDA-Public Use
  Company Number: US-GILEAD-2013-0069846

PATIENT
  Age: 75 Year
  Sex: Female

DRUGS (3)
  1. LETAIRIS [Suspect]
     Indication: PULMONARY HYPERTENSION
     Dosage: 5 MG, QD
     Route: 048
     Dates: start: 20121217, end: 20130204
  2. LETAIRIS [Suspect]
     Indication: CARDIAC VALVE DISEASE
     Dosage: 5 MG, UNK
     Route: 048
  3. ISOSORBIDE [Concomitant]

REACTIONS (5)
  - Hypotension [Recovered/Resolved]
  - Tachycardia [Recovered/Resolved]
  - Chills [Unknown]
  - Insomnia [Unknown]
  - Haemoglobin decreased [Recovered/Resolved]
